FAERS Safety Report 4965105-5 (Version None)
Quarter: 2006Q1

REPORT INFORMATION
  Report Type: 
  Country: None (occurrence: None)
  Receive Date: 20060130
  Receipt Date: 20051228
  Transmission Date: 20060701
  Serious: No
  Sender: FDA-Public Use
  Company Number: COT_0367_2006

PATIENT
  Age: 73 Year
  Sex: Female
  Weight: 52.6173 kg

DRUGS (14)
  1. VENTAVIS [Suspect]
     Indication: PULMONARY HYPERTENSION
     Dosage: 5 MCG 6XD IH
     Route: 055
     Dates: start: 20051207
  2. BONIVA [Concomitant]
  3. ALDACTONE [Concomitant]
  4. ADVAIR DISKUS 100/50 [Concomitant]
  5. DEMADEX [Concomitant]
  6. ALLEGRA [Concomitant]
  7. SYNTHROID [Concomitant]
  8. COUMADIN [Concomitant]
  9. VIAGRA [Concomitant]
  10. CALCIUM GLUCONATE [Concomitant]
  11. ALLOPURINOL [Concomitant]
  12. PERCOCET [Concomitant]
  13. FOLIC ACID [Concomitant]
  14. POTASSIUM [Concomitant]

REACTIONS (4)
  - ASTHENIA [None]
  - NAUSEA [None]
  - PAIN IN EXTREMITY [None]
  - SOMNOLENCE [None]
